FAERS Safety Report 4624178-X (Version None)
Quarter: 2005Q1

REPORT INFORMATION
  Report Type: 
  Country: None (occurrence: None)
  Receive Date: 20050331
  Receipt Date: 20050323
  Transmission Date: 20050727
  Serious: Yes (Other)
  Sender: FDA-Public Use
  Company Number: GB-GLAXOSMITHKLINE-B0375831A

PATIENT
  Age: 57 Year
  Sex: Male
  Weight: 58 kg

DRUGS (5)
  1. ZYBAN [Suspect]
     Dosage: 15MG TWICE PER DAY
     Route: 048
     Dates: start: 20050218, end: 20050307
  2. SIMVASTATIN [Concomitant]
     Indication: BLOOD CHOLESTEROL INCREASED
     Dosage: 4MG PER DAY
     Route: 048
     Dates: start: 20040416
  3. LANSOPRAZOLE [Concomitant]
     Dosage: 15MG PER DAY
     Route: 048
  4. ENALAPRIL [Concomitant]
     Indication: HYPERTENSION
     Dosage: 20MG PER DAY
     Route: 048
     Dates: start: 19991109
  5. MIXTARD HUMAN 70/30 [Concomitant]
     Indication: DIABETES MELLITUS
     Route: 058
     Dates: start: 20040729

REACTIONS (4)
  - BLOOD GLUCOSE DECREASED [None]
  - CIRCULATORY COLLAPSE [None]
  - HYPOGLYCAEMIA [None]
  - LOSS OF CONSCIOUSNESS [None]
